FAERS Safety Report 17903983 (Version 2)
Quarter: 2020Q3

REPORT INFORMATION
  Report Type: Spontaneous
  Country: US (occurrence: US)
  Receive Date: 20200616
  Receipt Date: 20200818
  Transmission Date: 20201103
  Serious: Yes (Death)
  Sender: FDA-Public Use
  Company Number: US-LUNDBECK-DKLU3017342

PATIENT
  Age: 55 Year
  Sex: Male

DRUGS (1)
  1. NORTHERA [Suspect]
     Active Substance: DROXIDOPA
     Indication: MULTIPLE SYSTEM ATROPHY
     Route: 048

REACTIONS (2)
  - Multiple system atrophy [Fatal]
  - Disease progression [Fatal]
